FAERS Safety Report 15801569 (Version 1)
Quarter: 2019Q1

REPORT INFORMATION
  Report Type: Spontaneous
  Country: US (occurrence: US)
  Receive Date: 20190104
  Receipt Date: 20190104
  Transmission Date: 20190417
  Serious: No
  Sender: FDA-Public Use
  Company Number: None

PATIENT

DRUGS (3)
  1. MYCOPHENOLIC TAB 360MG DR [Suspect]
     Active Substance: MYCOPHENOLIC ACID
     Dates: start: 201802
  2. TACROLIMUS. [Concomitant]
     Active Substance: TACROLIMUS
  3. SIROLIMUS. [Concomitant]
     Active Substance: SIROLIMUS

REACTIONS (3)
  - Dehydration [None]
  - Pyrexia [None]
  - Diarrhoea [None]
